FAERS Safety Report 5375407-9 (Version None)
Quarter: 2007Q2

REPORT INFORMATION
  Report Type: 
  Country: None (occurrence: None)
  Receive Date: 20070629
  Receipt Date: 20070619
  Transmission Date: 20071010
  Serious: Yes (Other)
  Sender: FDA-Public Use
  Company Number: US-PFIZER INC-2007032047

PATIENT
  Sex: Male

DRUGS (1)
  1. LIPITOR [Suspect]
     Indication: BLOOD CHOLESTEROL ABNORMAL
     Dates: start: 20000101, end: 20070201

REACTIONS (4)
  - FALL [None]
  - GAIT DISTURBANCE [None]
  - MUSCULAR WEAKNESS [None]
  - PAIN IN EXTREMITY [None]
